FAERS Safety Report 12422657 (Version 1)
Quarter: 2016Q2

REPORT INFORMATION
  Report Type: Spontaneous
  Country: CZ (occurrence: CZ)
  Receive Date: 20160601
  Receipt Date: 20160601
  Transmission Date: 20160815
  Serious: Yes (Other)
  Sender: FDA-Public Use
  Company Number: CZ-ACCORD-041122

PATIENT
  Age: 47 Year
  Sex: Male

DRUGS (2)
  1. CARBOPLATIN. [Concomitant]
     Active Substance: CARBOPLATIN
     Indication: THYROID CANCER
     Dosage: RECEIVED 02 CYCLES AS COMBINATION THERAPY THEN RECEIVED AS MONOTHERAPY.
  2. PACLITAXEL/PACLITAXEL LIPOSOME [Suspect]
     Active Substance: PACLITAXEL
     Indication: THYROID CANCER
     Dosage: RECEIVED SECOND CYCLE

REACTIONS (4)
  - Rash pruritic [None]
  - Thyroid cancer metastatic [None]
  - Malignant neoplasm progression [None]
  - Infusion related reaction [Unknown]
